FAERS Safety Report 10368924 (Version 1)
Quarter: 2014Q3

REPORT INFORMATION
  Report Type: Spontaneous
  Country: US (occurrence: US)
  Receive Date: 20140807
  Receipt Date: 20140807
  Transmission Date: 20150326
  Serious: Yes (Death, Hospitalization)
  Sender: FDA-Public Use
  Company Number: US-B.I. PHARMACEUTICALS,INC./RIDGEFIELD-2014-BI-35398BP

PATIENT
  Age: 66 Year
  Sex: Male

DRUGS (3)
  1. DIGOXIN. [Suspect]
     Active Substance: DIGOXIN
     Indication: PRODUCT USED FOR UNKNOWN INDICATION
     Route: 065
  2. PRADAXA [Suspect]
     Active Substance: DABIGATRAN ETEXILATE MESYLATE
     Indication: ATRIAL FIBRILLATION
     Route: 065
     Dates: start: 20130628, end: 20130813
  3. FENTANYL TRANSDERMAL SYSTEM [Concomitant]
     Active Substance: FENTANYL
     Indication: PAIN
     Route: 065

REACTIONS (7)
  - Toxicity to various agents [Unknown]
  - Gastrointestinal haemorrhage [Fatal]
  - Coagulopathy [Unknown]
  - Renal failure acute [Fatal]
  - Bradycardia [Unknown]
  - Haemorrhagic anaemia [Unknown]
  - Hypovolaemia [Fatal]

NARRATIVE: CASE EVENT DATE: 20130815
